FAERS Safety Report 14910500 (Version 1)
Quarter: 2018Q2

REPORT INFORMATION
  Report Type: Spontaneous
  Country: SK (occurrence: SK)
  Receive Date: 20180517
  Receipt Date: 20180517
  Transmission Date: 20180711
  Serious: Yes (Hospitalization, Other)
  Sender: FDA-Public Use
  Company Number: SK-BAUSCH-BL-2018-013879

PATIENT
  Age: 4 Year
  Sex: Male
  Weight: 12.5 kg

DRUGS (7)
  1. DIAZEPAM. [Suspect]
     Active Substance: DIAZEPAM
     Indication: MUSCLE SPASMS
     Route: 065
  2. METAMIZOLE [Interacting]
     Active Substance: METAMIZOLE
     Indication: MUSCLE SPASMS
     Route: 065
  3. TRAMADOL. [Interacting]
     Active Substance: TRAMADOL
     Indication: MUSCLE SPASMS
     Route: 065
  4. PENICILLIN [Concomitant]
     Active Substance: PENICILLIN
     Indication: PRODUCT USED FOR UNKNOWN INDICATION
  5. HUMAN ANTITETANUS IMMUNOGLOBULINE [Concomitant]
     Indication: PRODUCT USED FOR UNKNOWN INDICATION
     Route: 030
  6. MIDAZOLAM [Interacting]
     Active Substance: MIDAZOLAM HYDROCHLORIDE
     Indication: MUSCLE SPASMS
     Route: 065
  7. CLINDAMYCIN. [Concomitant]
     Active Substance: CLINDAMYCIN
     Indication: PRODUCT USED FOR UNKNOWN INDICATION

REACTIONS (2)
  - Drug interaction [Unknown]
  - Hypoventilation [Recovered/Resolved]
